FAERS Safety Report 8073107-8 (Version None)
Quarter: 2012Q1

REPORT INFORMATION
  Report Type: 
  Country: None (occurrence: None)
  Receive Date: 20120126
  Receipt Date: 20120115
  Transmission Date: 20120608
  Serious: Yes (Hospitalization)
  Sender: FDA-Public Use
  Company Number: CN-NOVOPROD-340247

PATIENT
  Age: 63 Year
  Sex: Female
  Weight: 57 kg

DRUGS (1)
  1. NOVOLOG MIX 70/30 [Suspect]
     Indication: TYPE 2 DIABETES MELLITUS
     Dosage: 14 U IN THE MORNING,14U IN THE EVENING
     Route: 058
     Dates: start: 20080101

REACTIONS (5)
  - VISION BLURRED [None]
  - PAIN [None]
  - HYPOAESTHESIA [None]
  - DIZZINESS [None]
  - DIABETES MELLITUS INADEQUATE CONTROL [None]
